FAERS Safety Report 4460874-5 (Version None)
Quarter: 2004Q3

REPORT INFORMATION
  Report Type: 
  Country: None (occurrence: None)
  Receive Date: 20040928
  Receipt Date: 20040602
  Transmission Date: 20050211
  Serious: No
  Sender: FDA-Public Use
  Company Number: US-GLAXOSMITHKLINE-A0513039A

PATIENT
  Age: 78 Year
  Sex: Female

DRUGS (9)
  1. ADVAIR DISKUS 100/50 [Suspect]
     Dosage: 1PUFF TWICE PER DAY
     Route: 055
  2. PREMARIN [Concomitant]
  3. DYAZIDE [Concomitant]
  4. NORVASC [Concomitant]
  5. SINGULAIR [Concomitant]
  6. ASPIRIN [Concomitant]
  7. CALCIUM [Concomitant]
  8. VIT E [Concomitant]
  9. COD LIVER OIL [Concomitant]

REACTIONS (3)
  - COUGH [None]
  - DYSGEUSIA [None]
  - TONGUE DISCOLOURATION [None]
